FAERS Safety Report 12254677 (Version 2)
Quarter: 2017Q2

REPORT INFORMATION
  Report Type: Spontaneous
  Country: US (occurrence: US)
  Receive Date: 20160411
  Receipt Date: 20170413
  Transmission Date: 20170830
  Serious: No
  Sender: FDA-Public Use
  Company Number: US-SA-2015SA206525

PATIENT
  Sex: Female

DRUGS (1)
  1. ALLEGRA D-12 HOUR [Suspect]
     Active Substance: FEXOFENADINE HYDROCHLORIDE\PSEUDOEPHEDRINE HYDROCHLORIDE
     Indication: HYPERSENSITIVITY
     Dosage: START DATE: YEARS AGO?DOSAGE : 60 MG/120MG
     Route: 065

REACTIONS (3)
  - Feeling abnormal [Unknown]
  - Expired product administered [Unknown]
  - Product packaging issue [Unknown]
